FAERS Safety Report 4887750-8 (Version None)
Quarter: 2006Q1

REPORT INFORMATION
  Report Type: 
  Country: None (occurrence: None)
  Receive Date: 20060123
  Receipt Date: 20060110
  Transmission Date: 20060701
  Serious: Yes (Hospitalization)
  Sender: FDA-Public Use
  Company Number: 2006SE00188

PATIENT
  Age: 19273 Day
  Sex: Female
  Weight: 63 kg

DRUGS (23)
  1. TCV-116 [Suspect]
     Indication: DIABETIC NEPHROPATHY
     Route: 048
     Dates: start: 20040316, end: 20040412
  2. TCV-116 [Suspect]
     Route: 048
     Dates: start: 20040413, end: 20040510
  3. TCV-116 [Suspect]
     Route: 048
     Dates: start: 20040511, end: 20060103
  4. GLIMICRON [Concomitant]
     Indication: DIABETES MELLITUS NON-INSULIN-DEPENDENT
     Route: 048
     Dates: end: 20050131
  5. GLIMICRON [Concomitant]
     Route: 048
     Dates: start: 20050201, end: 20060105
  6. ZYLORIC [Concomitant]
     Indication: HYPERURICAEMIA
     Route: 048
     Dates: start: 20020715, end: 20060105
  7. VANCOMIN [Concomitant]
     Indication: NEUROPATHY PERIPHERAL
     Route: 048
     Dates: start: 20020715, end: 20060105
  8. COMELIAN [Concomitant]
     Indication: PROTEIN URINE PRESENT
     Route: 048
     Dates: start: 20020416, end: 20060105
  9. LIPITOR [Concomitant]
     Indication: HYPERLIPIDAEMIA
     Route: 048
     Dates: start: 20020416, end: 20060105
  10. RIZABEN [Concomitant]
     Indication: CONJUNCTIVITIS ALLERGIC
     Route: 047
  11. ALMARL [Concomitant]
     Indication: HYPERTENSION
     Route: 048
     Dates: start: 20040127
  12. AMLODIN [Concomitant]
     Indication: HYPERTENSION
     Route: 048
     Dates: end: 20041121
  13. AMLODIN [Concomitant]
     Route: 048
     Dates: start: 20041122, end: 20060105
  14. AMARYL [Concomitant]
     Indication: DIABETES MELLITUS NON-INSULIN-DEPENDENT
     Route: 048
     Dates: start: 20040127
  15. LASIX [Concomitant]
     Indication: OEDEMA
     Route: 048
     Dates: end: 20041221
  16. LASIX [Concomitant]
     Route: 048
     Dates: start: 20041222, end: 20060105
  17. TORSEMIDE [Concomitant]
     Indication: OEDEMA
     Route: 048
     Dates: start: 20050830, end: 20060105
  18. PURSENNID [Concomitant]
     Indication: CONSTIPATION
     Route: 048
     Dates: start: 20051025, end: 20060105
  19. MAGNESIUM OXIDE HEAVY [Concomitant]
     Indication: CONSTIPATION
     Route: 048
     Dates: start: 20050927, end: 20060105
  20. UREPEARL [Concomitant]
     Indication: DRY SKIN
     Route: 062
     Dates: start: 20050412
  21. ISODINE GARGLE [Concomitant]
     Indication: STOMATITIS
     Route: 049
     Dates: start: 20051220
  22. APHTASOLON [Concomitant]
     Indication: STOMATITIS
     Route: 049
     Dates: start: 20051220
  23. DIART [Concomitant]
     Indication: OEDEMA
     Route: 048
     Dates: start: 20050315, end: 20050829

REACTIONS (9)
  - ANAEMIA [None]
  - BALANCE DISORDER [None]
  - CARDIAC FAILURE [None]
  - FALL [None]
  - FEMORAL NECK FRACTURE [None]
  - GENERALISED OEDEMA [None]
  - PANCYTOPENIA [None]
  - PLEURAL EFFUSION [None]
  - PNEUMONIA [None]
